FAERS Safety Report 25935977 (Version 1)
Quarter: 2025Q4

REPORT INFORMATION
  Report Type: Spontaneous
  Country: GB (occurrence: GB)
  Receive Date: 20251017
  Receipt Date: 20251017
  Transmission Date: 20260117
  Serious: Yes (Hospitalization)
  Sender: NOVARTIS
  Company Number: GB-002147023-NVSC2025GB157056

PATIENT
  Age: 1 Year
  Sex: Male

DRUGS (1)
  1. TRAMETINIB [Suspect]
     Active Substance: TRAMETINIB
     Indication: Mesoblastic nephroma
     Dosage: UNK
     Route: 065

REACTIONS (3)
  - Mesoblastic nephroma [Unknown]
  - Drug ineffective [Unknown]
  - Off label use [Unknown]
